FAERS Safety Report 5618633-3 (Version None)
Quarter: 2008Q1

REPORT INFORMATION
  Report Type: 
  Country: None (occurrence: None)
  Receive Date: 20080205
  Receipt Date: 20080205
  Transmission Date: 20080703
  Serious: Yes (Life-Threatening, Hospitalization, Disabling, Other)
  Sender: FDA-Public Use
  Company Number: None

PATIENT
  Sex: Male
  Weight: 77.5651 kg

DRUGS (4)
  1. AMIODARONE HCL [Suspect]
     Indication: HEART RATE IRREGULAR
     Dates: start: 20061018, end: 20061018
  2. AMIODARONE HCL [Suspect]
     Indication: MITRAL VALVE REPLACEMENT
     Dates: start: 20061018, end: 20061018
  3. AMIODARONE HCL [Suspect]
     Indication: HEART RATE IRREGULAR
     Dates: start: 20070815, end: 20070819
  4. AMIODARONE HCL [Suspect]
     Indication: MITRAL VALVE REPLACEMENT
     Dates: start: 20070815, end: 20070819

REACTIONS (8)
  - CARDIAC ARREST [None]
  - CONTRAINDICATION TO MEDICAL TREATMENT [None]
  - DOCUMENTED HYPERSENSITIVITY TO ADMINISTERED DRUG [None]
  - EXOPHTHALMOS [None]
  - FLUID RETENTION [None]
  - OEDEMA [None]
  - RENAL FAILURE [None]
  - SKIN DISCOLOURATION [None]
